FAERS Safety Report 16143453 (Version 1)
Quarter: 2019Q2

REPORT INFORMATION
  Report Type: Spontaneous
  Country: CA (occurrence: CA)
  Receive Date: 20190401
  Receipt Date: 20190401
  Transmission Date: 20190711
  Serious: Yes (Hospitalization, Other)
  Sender: FDA-Public Use
  Company Number: CA-009507513-1903CAN010329

PATIENT
  Sex: Female

DRUGS (3)
  1. FOSAMAX [Suspect]
     Active Substance: ALENDRONATE SODIUM
     Indication: PRODUCT USED FOR UNKNOWN INDICATION
     Dosage: 10MG DAILY
     Route: 048
     Dates: start: 20000724, end: 200304
  2. ALENDRONATE SODIUM. [Suspect]
     Active Substance: ALENDRONATE SODIUM
     Indication: PRODUCT USED FOR UNKNOWN INDICATION
     Dosage: 70MG ONCE A WEEK
     Route: 048
     Dates: start: 20051012, end: 20101003
  3. FOSAMAX [Suspect]
     Active Substance: ALENDRONATE SODIUM
     Indication: PRODUCT USED FOR UNKNOWN INDICATION
     Dosage: 70MG WEEKLY
     Route: 048
     Dates: start: 20030502, end: 200510

REACTIONS (5)
  - Hydronephrosis [Unknown]
  - Limb asymmetry [Unknown]
  - Pelvi-ureteric obstruction [Unknown]
  - Femur fracture [Unknown]
  - Fracture nonunion [Unknown]

NARRATIVE: CASE EVENT DATE: 20100717
